FAERS Safety Report 8937968 (Version 1)
Quarter: 2012Q4

REPORT INFORMATION
  Report Type: 
  Country: FR (occurrence: FR)
  Receive Date: 20121130
  Receipt Date: 20121130
  Transmission Date: 20130627
  Serious: Yes (Disabling)
  Sender: FDA-Public Use
  Company Number: FR-ELI_LILLY_AND_COMPANY-FR201211007070

PATIENT
  Sex: Male

DRUGS (6)
  1. ALIMTA [Suspect]
     Indication: PLEURAL MESOTHELIOMA MALIGNANT
     Dosage: 875 mg, other
     Route: 042
     Dates: start: 20110208
  2. ALIMTA [Suspect]
     Dosage: 850 mg, other
     Route: 042
     Dates: start: 20110322
  3. ALIMTA [Suspect]
     Dosage: 700 mg, other
     Route: 042
     Dates: start: 20110401
  4. ALIMTA [Suspect]
     Dosage: 875 mg, other
     Route: 042
     Dates: start: 20110712, end: 20110802
  5. CISPLATINE [Concomitant]
     Indication: PLEURAL MESOTHELIOMA MALIGNANT
     Dosage: 133 mg, unknown
     Route: 065
     Dates: start: 20110208, end: 20110412
  6. CARBOPLATINE TEVA [Concomitant]
     Indication: PLEURAL MESOTHELIOMA MALIGNANT
     Dosage: 400 mg, UNK
     Dates: start: 20110712, end: 20110802

REACTIONS (4)
  - Hypoacusis [Not Recovered/Not Resolved]
  - Memory impairment [Not Recovered/Not Resolved]
  - Disturbance in attention [Not Recovered/Not Resolved]
  - Renal failure [Unknown]
